FAERS Safety Report 9208763 (Version 1)
Quarter: 2013Q2

REPORT INFORMATION
  Report Type: Spontaneous
  Country: US (occurrence: US)
  Receive Date: 20130404
  Receipt Date: 20130404
  Transmission Date: 20140414
  Serious: No
  Sender: FDA-Public Use
  Company Number: US-PFIZER INC-2013104229

PATIENT
  Age: 62 Year
  Sex: Male

DRUGS (1)
  1. SUTENT [Suspect]
     Indication: RENAL CANCER
     Dosage: 5 MG, CYCLIC (4 WEEKS ON, 2 WEEKS OFF)
     Dates: start: 20121129

REACTIONS (2)
  - Disease progression [Unknown]
  - Renal cancer [Unknown]
